FAERS Safety Report 12297041 (Version 1)
Quarter: 2016Q2

REPORT INFORMATION
  Report Type: Spontaneous
  Country: US (occurrence: US)
  Receive Date: 20160422
  Receipt Date: 20160422
  Transmission Date: 20160815
  Serious: No
  Sender: FDA-Public Use
  Company Number: US-FRESENIUS KABI-FK201602030

PATIENT
  Age: 60 Year
  Sex: Female
  Weight: 97.5 kg

DRUGS (7)
  1. CAD ASPIRIN [Concomitant]
  2. PRAVASTATIN [Concomitant]
     Active Substance: PRAVASTATIN\PRAVASTATIN SODIUM
  3. ALPRAZOLAM. [Concomitant]
     Active Substance: ALPRAZOLAM
  4. DECADRON [Suspect]
     Active Substance: DEXAMETHASONE
     Indication: GENERAL ANAESTHESIA
     Route: 042
     Dates: start: 20160413, end: 20160413
  5. LISINOPRIL. [Concomitant]
     Active Substance: LISINOPRIL
  6. NAROPIN [Suspect]
     Active Substance: ROPIVACAINE HYDROCHLORIDE
     Indication: NERVE BLOCK
     Route: 042
     Dates: start: 20160413, end: 20160413
  7. EPINEPHRINE. [Suspect]
     Active Substance: EPINEPHRINE
     Indication: GENERAL ANAESTHESIA
     Route: 042
     Dates: start: 20160413, end: 20160413

REACTIONS (1)
  - Drug ineffective [Unknown]

NARRATIVE: CASE EVENT DATE: 20160413
